APPROVED DRUG PRODUCT: ACETAMINOPHEN
Active Ingredient: ACETAMINOPHEN
Strength: 650MG
Dosage Form/Route: TABLET, EXTENDED RELEASE;ORAL
Application: A211544 | Product #001
Applicant: GRANULES INDIA LTD
Approved: Apr 16, 2019 | RLD: No | RS: No | Type: OTC